FAERS Safety Report 16429547 (Version 1)
Quarter: 2019Q2

REPORT INFORMATION
  Report Type: Spontaneous
  Country: US (occurrence: US)
  Receive Date: 20190614
  Receipt Date: 20190614
  Transmission Date: 20190711
  Serious: No
  Sender: FDA-Public Use
  Company Number: US-009507513-1906USA005389

PATIENT
  Sex: Female

DRUGS (1)
  1. NEXPLANON [Suspect]
     Active Substance: ETONOGESTREL
     Indication: CONTRACEPTION
     Dosage: 68 MILLIGRAM, IN THE ARM
     Route: 059
     Dates: start: 201904

REACTIONS (4)
  - Implant site mass [Unknown]
  - Implant site bruising [Unknown]
  - Complication associated with device [Unknown]
  - Implant site pain [Unknown]

NARRATIVE: CASE EVENT DATE: 2019
